FAERS Safety Report 4768266-6 (Version None)
Quarter: 2005Q3

REPORT INFORMATION
  Report Type: 
  Country: None (occurrence: None)
  Receive Date: 20050909
  Receipt Date: 20050909
  Transmission Date: 20060218
  Serious: Yes (Death, Hospitalization)
  Sender: FDA-Public Use
  Company Number: None

PATIENT
  Sex: Male
  Weight: 75 kg

DRUGS (8)
  1. ALLOPURINOL [Suspect]
     Indication: ACUTE LYMPHOCYTIC LEUKAEMIA
     Dosage: SEE IMAGE
     Route: 048
     Dates: end: 20050712
  2. ALLOPURINOL [Suspect]
     Indication: ACUTE LYMPHOCYTIC LEUKAEMIA
     Dosage: SEE IMAGE
     Route: 048
     Dates: start: 20050707
  3. CYCLOPHOSPHAMIDE [Suspect]
     Dosage: SEE IMAGE
     Route: 042
     Dates: start: 20050707
  4. DAUNORUBICIN HCL [Suspect]
     Dosage: SEE IMAGE
     Route: 042
     Dates: end: 20050709
  5. DAUNORUBICIN HCL [Suspect]
     Dosage: SEE IMAGE
     Route: 042
     Dates: start: 20050707
  6. VINCRISTINE [Suspect]
     Dosage: SEE IMAGE
     Route: 042
     Dates: start: 20050707
  7. DEXAMETHASONE [Suspect]
     Dosage: SEE IMAGE
     Route: 048
     Dates: start: 20050707
  8. ELSPAR [Suspect]
     Dosage: SEE IMAGE
     Route: 048
     Dates: start: 20050707

REACTIONS (11)
  - ALPHA HAEMOLYTIC STREPTOCOCCAL INFECTION [None]
  - ASPERGILLOSIS [None]
  - ASPIRATION BONE MARROW ABNORMAL [None]
  - ATRIAL FLUTTER [None]
  - BLOOD CULTURE POSITIVE [None]
  - FUNGAL INFECTION [None]
  - HIV TEST POSITIVE [None]
  - LUNG INFILTRATION [None]
  - PNEUMONIA [None]
  - SPUTUM CULTURE POSITIVE [None]
  - STENOTROPHOMONAS INFECTION [None]
